FAERS Safety Report 5173190-3 (Version None)
Quarter: 2006Q4

REPORT INFORMATION
  Report Type: 
  Country: None (occurrence: None)
  Receive Date: 20061205
  Receipt Date: 20061120
  Transmission Date: 20070319
  Serious: Yes (Other)
  Sender: FDA-Public Use
  Company Number: 2006-05879

PATIENT
  Age: 7 Year
  Sex: Male

DRUGS (1)
  1. OXYTROL [Suspect]
     Indication: DRUG ADMINISTRATION ERROR
     Dosage: 10 MG

REACTIONS (2)
  - MEDICATION ERROR [None]
  - PSYCHOTIC DISORDER [None]
